FAERS Safety Report 17459486 (Version 1)
Quarter: 2020Q1

REPORT INFORMATION
  Report Type: Spontaneous
  Country: US (occurrence: US)
  Receive Date: 20200225
  Receipt Date: 20200225
  Transmission Date: 20200409
  Serious: No
  Sender: FDA-Public Use
  Company Number: US-ROCHE-2290894

PATIENT
  Age: 1 Year
  Sex: Male

DRUGS (1)
  1. NUTROPIN AQ [Suspect]
     Active Substance: SOMATROPIN
     Indication: ENDOCRINE DISORDER
     Dosage: UNKNOWN
     Route: 058
     Dates: start: 20190320

REACTIONS (4)
  - Nasopharyngitis [Unknown]
  - Intentional product use issue [Unknown]
  - Off label use [Unknown]
  - Pyrexia [Unknown]

NARRATIVE: CASE EVENT DATE: 20190320
